FAERS Safety Report 10720300 (Version 1)
Quarter: 2015Q1

REPORT INFORMATION
  Report Type: Spontaneous
  Country: US (occurrence: US)
  Receive Date: 20150119
  Receipt Date: 20150119
  Transmission Date: 20150721
  Serious: No
  Sender: FDA-Public Use
  Company Number: US-TARO-2014P1001143

PATIENT
  Age: 83 Year
  Sex: Male
  Weight: 97.52 kg

DRUGS (12)
  1. THYROXINE [Concomitant]
     Active Substance: LEVOTHYROXINE
  2. GRAPE SEED COMPLEX [Concomitant]
  3. INSULIN R [Concomitant]
     Dosage: 4 QD
  4. TRIAMCINOLONE ACETONIDE CREAM [Suspect]
     Active Substance: TRIAMCINOLONE ACETONIDE
     Indication: LOCALISED INFECTION
     Dates: start: 201402, end: 20140205
  5. BILBERRY [Concomitant]
     Active Substance: BILBERRY
  6. VITAMIN D3 5000 IU [Concomitant]
  7. TRIAMCINOLONE ACETONIDE CREAM [Suspect]
     Active Substance: TRIAMCINOLONE ACETONIDE
     Indication: PRURITUS
  8. MULTIVITAMIN [Concomitant]
     Active Substance: VITAMINS
  9. HYDROCORTISONE CREAM USP 1% (OTC) [Suspect]
     Active Substance: HYDROCORTISONE
     Indication: PRURITUS
     Dosage: QOD
     Route: 061
     Dates: start: 20131202, end: 20140205
  10. PROPRANOLOL [Concomitant]
     Active Substance: PROPRANOLOL\PROPRANOLOL HYDROCHLORIDE
     Dates: start: 1974
  11. INSULIN N [Concomitant]
     Dosage: 4 QD
  12. HYDROCORTISONE CREAM 1% PLUS 12 MOISTURIZERS [Suspect]
     Active Substance: HYDROCORTISONE
     Indication: PRURITUS
     Dosage: QOD
     Route: 061
     Dates: start: 20131202, end: 20140205

REACTIONS (8)
  - Application site exfoliation [Recovering/Resolving]
  - Drug ineffective [Not Recovered/Not Resolved]
  - Erythema [Recovering/Resolving]
  - Papule [Recovering/Resolving]
  - Dry skin [Unknown]
  - Localised infection [Unknown]
  - Pruritus [Recovering/Resolving]
  - Scab [Recovering/Resolving]

NARRATIVE: CASE EVENT DATE: 20131202
